FAERS Safety Report 5119703-9 (Version None)
Quarter: 2006Q4

REPORT INFORMATION
  Report Type: 
  Country: None (occurrence: None)
  Receive Date: 20061003
  Receipt Date: 20060919
  Transmission Date: 20070319
  Serious: Yes (Other)
  Sender: FDA-Public Use
  Company Number: LB-MERCK-0609USA06182

PATIENT
  Age: 18 Year
  Sex: Male

DRUGS (7)
  1. PRIMAXIN [Suspect]
     Route: 042
     Dates: start: 20060712, end: 20060101
  2. ZANTAC [Concomitant]
     Route: 042
     Dates: start: 20060712
  3. BISOLVON [Concomitant]
     Route: 065
  4. PHENYTOIN SODIUM CAP [Concomitant]
     Route: 065
  5. THIOPENTAL SODIUM [Concomitant]
     Route: 065
  6. VALIUM [Concomitant]
     Route: 065
  7. FENTANYL [Concomitant]
     Route: 065

REACTIONS (1)
  - PSEUDOMONAS INFECTION [None]
